FAERS Safety Report 24431299 (Version 2)
Quarter: 2025Q1

REPORT INFORMATION
  Report Type: Spontaneous
  Country: US (occurrence: US)
  Receive Date: 20241014
  Receipt Date: 20250218
  Transmission Date: 20250409
  Serious: Yes (Life-Threatening, Hospitalization, Other)
  Sender: AUROBINDO
  Company Number: US-MLMSERVICE-20240923-PI202752-00049-1

PATIENT
  Age: 35 Year
  Sex: Male

DRUGS (7)
  1. AMITRIPTYLINE HYDROCHLORIDE [Suspect]
     Active Substance: AMITRIPTYLINE HYDROCHLORIDE
     Indication: Vomiting
     Route: 065
  2. ADENOSINE [Concomitant]
     Active Substance: ADENOSINE
     Indication: Tachycardia
     Route: 065
  3. AMIODARONE [Concomitant]
     Active Substance: AMIODARONE
     Indication: Tachycardia
     Route: 042
  4. DILTIAZEM [Concomitant]
     Active Substance: DILTIAZEM
     Indication: Tachycardia
     Route: 065
  5. MAGNESIUM [Concomitant]
     Active Substance: MAGNESIUM
     Indication: Tachycardia
     Route: 042
  6. LIDOCAINE [Concomitant]
     Active Substance: LIDOCAINE
     Indication: Product used for unknown indication
     Route: 065
  7. PROPRANOLOL [Concomitant]
     Active Substance: PROPRANOLOL HYDROCHLORIDE
     Indication: Ventricular tachycardia
     Route: 065

REACTIONS (3)
  - Atrial fibrillation [Unknown]
  - Tachycardia [Unknown]
  - Intentional product use issue [Unknown]
